FAERS Safety Report 9013314 (Version 1)
Quarter: 2013Q1

REPORT INFORMATION
  Report Type: Spontaneous
  Country: US (occurrence: None)
  Receive Date: 20130107
  Receipt Date: 20130107
  Transmission Date: 20140127
  Serious: Yes (Life-Threatening, Hospitalization)
  Sender: FDA-Public Use
  Company Number: None

PATIENT
  Age: 40 Year
  Sex: Female
  Weight: 70.31 kg

DRUGS (1)
  1. HCG [Suspect]
     Dosage: 100 UNITS, QD, SQ
     Route: 058
     Dates: start: 20111110, end: 20120319

REACTIONS (1)
  - Pulmonary embolism [None]
